FAERS Safety Report 6486462-7 (Version None)
Quarter: 2009Q4

REPORT INFORMATION
  Report Type: 
  Country: None (occurrence: None)
  Receive Date: 20091210
  Receipt Date: 20091127
  Transmission Date: 20100525
  Serious: Yes (Hospitalization)
  Sender: FDA-Public Use
  Company Number: US-ASTRAZENECA-2009SE29656

PATIENT
  Age: 67 Year
  Sex: Male

DRUGS (9)
  1. SYMBICORT [Suspect]
     Indication: ASTHMA
     Dosage: 2 PUFFS BID
     Route: 055
  2. SYMBICORT [Suspect]
     Indication: CHRONIC OBSTRUCTIVE PULMONARY DISEASE
     Dosage: 2 PUFFS BID
     Route: 055
  3. NORVASC [Concomitant]
     Indication: HYPERTENSION
  4. ATENOLOL [Concomitant]
     Indication: HYPERTENSION
  5. AVAPRO [Concomitant]
     Indication: HYPERTENSION
  6. LASIX [Concomitant]
     Indication: OEDEMA PERIPHERAL
  7. ALLOPURINOL [Concomitant]
     Indication: GOUT
  8. EZETROL [Concomitant]
  9. ASPIRIN [Concomitant]
     Dates: start: 20070101

REACTIONS (1)
  - VERTIGO POSITIONAL [None]
